FAERS Safety Report 8728553 (Version 5)
Quarter: 2012Q4

REPORT INFORMATION
  Report Type: Report from Study
  Country: CZ (occurrence: CZ)
  Receive Date: 20120817
  Receipt Date: 20121003
  Transmission Date: 20130627
  Serious: Yes (Hospitalization)
  Sender: FDA-Public Use
  Company Number: CZ-UCBSA-063319

PATIENT
  Age: 35 Year
  Sex: Female
  Weight: 54.8 kg

DRUGS (5)
  1. CERTOLIZUMAB PEGOL [Suspect]
     Indication: PSORIATIC ARTHROPATHY
     Dosage: OPEN-LABEL PERIOD
     Route: 058
     Dates: start: 20120222, end: 20120725
  2. CERTOLIZUMAB PEGOL [Suspect]
     Indication: PSORIATIC ARTHROPATHY
     Dosage: BLINDED DOSAGE PERIOD
     Route: 058
     Dates: start: 20110907, end: 20120222
  3. CERTOLIZUMAB PEGOL [Suspect]
     Indication: PSORIATIC ARTHROPATHY
     Dosage: DOUBLE BLIND PERIOD
     Route: 058
     Dates: start: 20110323, end: 20110907
  4. ZOLOFT [Concomitant]
     Indication: DEPRESSED MOOD
     Route: 048
     Dates: start: 201001
  5. BRUFEN [Concomitant]
     Indication: PSORIATIC ARTHROPATHY
     Dosage: 400 MG PRN
     Route: 048
     Dates: start: 201001

REACTIONS (1)
  - Pyoderma streptococcal [Recovered/Resolved]
